FAERS Safety Report 4883692-2 (Version None)
Quarter: 2006Q1

REPORT INFORMATION
  Report Type: 
  Country: None (occurrence: None)
  Receive Date: 20060113
  Receipt Date: 20060105
  Transmission Date: 20060701
  Serious: Yes (Death, Other)
  Sender: FDA-Public Use
  Company Number: 2006005078

PATIENT
  Sex: Female
  Weight: 3 kg

DRUGS (2)
  1. AMLODIPINE [Suspect]
     Indication: HYPERTENSION
     Dosage: 500 MCG (500 MCG, 1 IN 1 D), ORAL
     Route: 064
     Dates: start: 20051123
  2. NIFEDIPINE [Concomitant]
     Route: 064

REACTIONS (2)
  - CARDIOMYOPATHY [None]
  - SUDDEN DEATH [None]
